FAERS Safety Report 6497723-X (Version None)
Quarter: 2009Q4

REPORT INFORMATION
  Report Type: 
  Country: None (occurrence: None)
  Receive Date: 20091211
  Receipt Date: 20091202
  Transmission Date: 20100525
  Serious: Yes (Hospitalization)
  Sender: FDA-Public Use
  Company Number: 2008EU002688

PATIENT
  Age: 61 Year
  Sex: Male

DRUGS (3)
  1. PROGRAF [Suspect]
     Indication: LIVER TRANSPLANT
     Dosage: /D, ORAL
     Route: 048
     Dates: start: 20061101
  2. INFLUVAC (INFLUENZA VACCINE) [Suspect]
     Indication: INFLUENZA IMMUNISATION
     Dosage: /D, SUBCUTANEOUS
     Route: 058
     Dates: start: 20081020, end: 20081020
  3. NEORECORMON (EPOETIN BETA) [Suspect]
     Dosage: /D, SUBCUTANEOUS
     Route: 058
     Dates: end: 20081027

REACTIONS (1)
  - STATUS EPILEPTICUS [None]
